FAERS Safety Report 24122027 (Version 1)
Quarter: 2024Q3

REPORT INFORMATION
  Report Type: Spontaneous
  Country: US (occurrence: US)
  Receive Date: 20240722
  Receipt Date: 20240722
  Transmission Date: 20241016
  Serious: No
  Sender: SUNOVION
  Company Number: US-SMPA-2024SPA000135AA

PATIENT

DRUGS (1)
  1. LATUDA [Suspect]
     Active Substance: LURASIDONE HYDROCHLORIDE
     Indication: Bipolar II disorder
     Dosage: 20 MG, HS
     Route: 048
     Dates: start: 2023

REACTIONS (4)
  - Derealisation [Unknown]
  - Weight increased [Unknown]
  - Off label use [Unknown]
  - Drug effective for unapproved indication [Unknown]
